FAERS Safety Report 25745052 (Version 1)
Quarter: 2025Q3

REPORT INFORMATION
  Report Type: Report from Study
  Country: US (occurrence: US)
  Receive Date: 20250901
  Receipt Date: 20250901
  Transmission Date: 20251021
  Serious: No
  Sender: DECIPHERA PHARMACEUTICALS
  Company Number: US-DECIPHERA PHARMACEUTICALS LLC-2025US001040

PATIENT
  Age: 37 Year
  Sex: Male

DRUGS (1)
  1. ROMVIMZA [Suspect]
     Active Substance: VIMSELTINIB
     Indication: Synovitis
     Dosage: 30 MILLIGRAM, TWICE WEEKLY
     Dates: start: 20250805

REACTIONS (1)
  - Fatigue [Unknown]

NARRATIVE: CASE EVENT DATE: 20250801
